FAERS Safety Report 8138891-3 (Version None)
Quarter: 2012Q1

REPORT INFORMATION
  Report Type: 
  Country: None (occurrence: None)
  Receive Date: 20120215
  Receipt Date: 20120209
  Transmission Date: 20120608
  Serious: Yes (Other)
  Sender: FDA-Public Use
  Company Number: DE-ELI_LILLY_AND_COMPANY-DE201202002859

PATIENT
  Age: 75 Year
  Sex: Male

DRUGS (3)
  1. VISC-OPHTAL [Concomitant]
     Dosage: UNK
  2. CIALIS [Suspect]
     Indication: ERECTILE DYSFUNCTION
     Dosage: 10 MG, PRN
  3. RAMIPRIL [Concomitant]

REACTIONS (2)
  - ATRIAL FIBRILLATION [None]
  - CARDIAC ABLATION [None]
